FAERS Safety Report 7388630-9 (Version None)
Quarter: 2011Q2

REPORT INFORMATION
  Report Type: 
  Country: None (occurrence: None)
  Receive Date: 20110401
  Receipt Date: 20110317
  Transmission Date: 20111010
  Serious: Yes (Hospitalization)
  Sender: FDA-Public Use
  Company Number: DE-GENENTECH-315285

PATIENT
  Sex: Female
  Weight: 67 kg

DRUGS (15)
  1. CYTARABINE [Concomitant]
     Dosage: UNK
  2. METHYLPREDNISOLONE [Concomitant]
     Indication: B-CELL LYMPHOMA RECURRENT
     Dosage: UNK
     Dates: start: 20080601, end: 20080901
  3. CYTARABINE [Concomitant]
     Indication: B-CELL LYMPHOMA RECURRENT
     Dosage: UNK
     Dates: start: 20080601, end: 20080901
  4. MELPHALAN [Concomitant]
     Indication: B-CELL LYMPHOMA RECURRENT
     Dosage: UNK
  5. RITUXIMAB [Suspect]
     Indication: B-CELL LYMPHOMA RECURRENT
     Dosage: UNK
     Route: 042
     Dates: start: 20061201, end: 20070301
  6. ETOPOSIDE [Concomitant]
     Indication: B-CELL LYMPHOMA RECURRENT
     Dosage: UNK
  7. EPIRUBICIN [Concomitant]
     Indication: B-CELL LYMPHOMA
     Dosage: UNK
     Dates: start: 20061201, end: 20070301
  8. VINCRISTINE [Concomitant]
     Indication: B-CELL LYMPHOMA
     Dosage: UNK
     Dates: start: 20061201, end: 20070301
  9. DEXAMETHASONE [Concomitant]
     Indication: B-CELL LYMPHOMA
     Dosage: UNK
     Dates: start: 20061201, end: 20070101
  10. CARMUSTINE [Concomitant]
     Indication: B-CELL LYMPHOMA RECURRENT
     Dosage: UNK
     Dates: start: 20081023, end: 20081027
  11. RITUXIMAB [Suspect]
     Dosage: UNK
     Dates: start: 20080601, end: 20080901
  12. CYCLOPHOSPHAMIDE [Concomitant]
     Indication: B-CELL LYMPHOMA
     Dosage: UNK
     Dates: start: 20061201, end: 20070301
  13. DOXORUBICIN [Concomitant]
     Indication: B-CELL LYMPHOMA RECURRENT
     Dosage: UNK
     Dates: start: 20080601, end: 20080901
  14. RITUXIMAB [Suspect]
     Indication: B-CELL LYMPHOMA
     Dosage: 1 DF, Q3M
     Route: 042
     Dates: start: 20090519, end: 20101201
  15. CISPLATIN [Concomitant]
     Indication: B-CELL LYMPHOMA RECURRENT
     Dosage: UNK

REACTIONS (3)
  - HYPOGAMMAGLOBULINAEMIA [None]
  - GENITAL ABSCESS [None]
  - ANAL ABSCESS [None]
